FAERS Safety Report 20440063 (Version 1)
Quarter: 2022Q1

REPORT INFORMATION
  Report Type: Spontaneous
  Country: US (occurrence: None)
  Receive Date: 20220205
  Receipt Date: 20220205
  Transmission Date: 20220423
  Serious: No
  Sender: FDA-Public Use
  Company Number: None

PATIENT
  Age: 46 Year
  Sex: Female
  Weight: 103.5 kg

DRUGS (6)
  1. BUPROPION HYDROCHLORIDE EXTENDED RELEASE [Suspect]
     Active Substance: BUPROPION HYDROCHLORIDE
     Indication: Depression
     Dosage: FREQUENCY : TWICE A DAY;?
     Route: 048
     Dates: start: 20220201
  2. METFORMIN [Concomitant]
     Active Substance: METFORMIN HYDROCHLORIDE
  3. PANTOPRAZOLE [Concomitant]
     Active Substance: PANTOPRAZOLE
  4. VITAMINS [Concomitant]
     Active Substance: VITAMINS
  5. CALCIUM\MAGNESIUM [Concomitant]
     Active Substance: CALCIUM\MAGNESIUM
  6. IBUPROFEN [Concomitant]
     Active Substance: IBUPROFEN

REACTIONS (9)
  - Product substitution issue [None]
  - Nausea [None]
  - Dizziness [None]
  - Arthralgia [None]
  - Malaise [None]
  - Feeling abnormal [None]
  - Withdrawal syndrome [None]
  - Headache [None]
  - Abdominal pain upper [None]

NARRATIVE: CASE EVENT DATE: 20220203
